FAERS Safety Report 9132601 (Version 1)
Quarter: 2013Q1

REPORT INFORMATION
  Report Type: Spontaneous
  Country: US (occurrence: US)
  Receive Date: 20130301
  Receipt Date: 20130301
  Transmission Date: 20140127
  Serious: No
  Sender: FDA-Public Use
  Company Number: US-PFIZER INC-2012253691

PATIENT
  Age: 70 Year
  Sex: Female
  Weight: 82.99 kg

DRUGS (1)
  1. PRISTIQ [Suspect]
     Indication: DEPRESSION
     Dosage: 100 MG, 1X/DAY
     Route: 048

REACTIONS (2)
  - Medication residue present [Unknown]
  - Wrong technique in drug usage process [Unknown]
